FAERS Safety Report 8058128-3 (Version None)
Quarter: 2012Q1

REPORT INFORMATION
  Report Type: 
  Country: None (occurrence: None)
  Receive Date: 20120117
  Receipt Date: 20120117
  Transmission Date: 20120608
  Serious: Yes (Other)
  Sender: FDA-Public Use
  Company Number: None

PATIENT
  Age: 2 Year
  Sex: Female

DRUGS (1)
  1. MULTIVIT W/FL CHEW TAB ORANGE BOCA PHARMACEUTICAL [Suspect]

REACTIONS (2)
  - VOMITING [None]
  - PRODUCT ODOUR ABNORMAL [None]
